FAERS Safety Report 8681689 (Version 3)
Quarter: 2012Q4

REPORT INFORMATION
  Report Type: 
  Country: JP (occurrence: JP)
  Receive Date: 20120725
  Receipt Date: 20121022
  Transmission Date: 20130627
  Serious: Yes (Hospitalization)
  Sender: FDA-Public Use
  Company Number: JP-PFIZER INC-2012173965

PATIENT
  Age: 66 Year
  Sex: Female
  Weight: 50.7 kg

DRUGS (8)
  1. AROMASIN [Suspect]
     Indication: BREAST CANCER
     Dosage: 25 mg, 1x/day
     Route: 048
     Dates: start: 20120209, end: 20120706
  2. CELECOX [Concomitant]
     Indication: PAIN
     Dosage: 100 mg, 2x/day
     Route: 048
     Dates: end: 20120713
  3. KEISIKAJUTUBUTO [Concomitant]
     Indication: PAIN
     Dosage: 2.5 g, 3x/day
     Route: 048
     Dates: end: 20120713
  4. SEFTAC [Concomitant]
     Indication: GASTRITIS PROPHYLAXIS
     Dosage: 0.5 g, 3x/day
     Route: 048
     Dates: start: 20100928, end: 20120731
  5. CRESTOR [Concomitant]
     Indication: HYPERLIPIDAEMIA
     Dosage: 2.5 mg, 1x/day
     Route: 048
     Dates: start: 20120214
  6. ALFAROL [Concomitant]
     Indication: OSTEOPOROSIS
     Dosage: 1.0 ug, 1x/day
     Route: 048
  7. BONALON [Concomitant]
     Indication: OSTEOPOROSIS
     Dosage: 35 mg, weekly
     Route: 048
  8. DEPAS [Concomitant]
     Indication: INSOMNIA
     Dosage: 0.5 mg, 1x/day
     Route: 048

REACTIONS (2)
  - Pulmonary alveolar haemorrhage [Recovering/Resolving]
  - Pneumonia [Recovering/Resolving]
